FAERS Safety Report 7003708-7 (Version None)
Quarter: 2010Q3

REPORT INFORMATION
  Report Type: 
  Country: None (occurrence: None)
  Receive Date: 20100920
  Receipt Date: 20100112
  Transmission Date: 20110219
  Serious: No
  Sender: FDA-Public Use
  Company Number: US-WYE-H10334109

PATIENT
  Sex: Female
  Weight: 69.01 kg

DRUGS (5)
  1. PRISTIQ [Suspect]
     Indication: BIPOLAR I DISORDER
     Route: 048
     Dates: start: 20081205, end: 20090201
  2. AVIANE-28 [Concomitant]
  3. TOPAMAX [Concomitant]
  4. LAMICTAL [Concomitant]
  5. GEODON [Concomitant]

REACTIONS (1)
  - AMENORRHOEA [None]
